FAERS Safety Report 9216850 (Version 2)
Quarter: 2013Q3

REPORT INFORMATION
  Report Type: Spontaneous
  Country: US (occurrence: None)
  Receive Date: 20130403
  Receipt Date: 20130813
  Transmission Date: 20140515
  Serious: Yes (Other)
  Sender: FDA-Public Use
  Company Number: JPI-P-030770

PATIENT
  Age: 57 Year
  Sex: Female

DRUGS (2)
  1. XYREM [Suspect]
     Indication: FIBROMYALGIA
     Dosage: 4.5 GM (2.25 GM, 2 IN 1 D), ORAL
     Route: 048
     Dates: start: 20060404
  2. XYREM [Suspect]
     Indication: SLEEP APNOEA SYNDROME
     Dosage: 4.5 GM (2.25 GM, 2 IN 1 D), ORAL
     Route: 048
     Dates: start: 20060404

REACTIONS (4)
  - Fall [None]
  - Hand fracture [None]
  - Adverse event [None]
  - Post-traumatic pain [None]
